FAERS Safety Report 9976081 (Version 1)
Quarter: 2014Q1

REPORT INFORMATION
  Report Type: Spontaneous
  Country: US (occurrence: US)
  Receive Date: 20140306
  Receipt Date: 20140306
  Transmission Date: 20141002
  Serious: No
  Sender: FDA-Public Use
  Company Number: US-PFIZER INC-2014063738

PATIENT
  Age: 82 Year
  Sex: Male

DRUGS (9)
  1. DILANTIN [Suspect]
     Dosage: 400 MG, DAILY (100 MG, 4/DAY)
  2. PLAVIX [Concomitant]
     Dosage: UNK
  3. DEXILANT [Concomitant]
     Dosage: UNK
  4. LOTENSIN [Concomitant]
     Dosage: UNK
  5. WARFARIN [Concomitant]
     Dosage: UNK
  6. NORVASC [Concomitant]
     Dosage: UNK
  7. FLONASE [Concomitant]
     Dosage: UNK
  8. VENTOLIN HFA [Concomitant]
     Dosage: UNK
  9. ADVAIR [Concomitant]
     Dosage: UNK

REACTIONS (1)
  - Drug hypersensitivity [Unknown]
